FAERS Safety Report 4909123-1 (Version None)
Quarter: 2006Q1

REPORT INFORMATION
  Report Type: 
  Country: None (occurrence: None)
  Receive Date: 20060208
  Receipt Date: 20060125
  Transmission Date: 20060701
  Serious: Yes (Other)
  Sender: FDA-Public Use
  Company Number: SUS1-2004-00595

PATIENT
  Age: 50 Year
  Sex: Female

DRUGS (2)
  1. ADDERALL 10 [Suspect]
     Dosage: 15 MG
  2. BISPHOSPHONATES [Concomitant]

REACTIONS (2)
  - ADRENAL ADENOMA [None]
  - METANEPHRINE URINE INCREASED [None]
